FAERS Safety Report 5216317-7 (Version None)
Quarter: 2007Q1

REPORT INFORMATION
  Report Type: 
  Country: None (occurrence: None)
  Receive Date: 20070123
  Receipt Date: 20070111
  Transmission Date: 20070707
  Serious: Yes (Other)
  Sender: FDA-Public Use
  Company Number: US-PFIZER INC-2007004383

PATIENT
  Sex: Male
  Weight: 70.3 kg

DRUGS (3)
  1. LYRICA [Suspect]
     Indication: POST HERPETIC NEURALGIA
  2. GABAPENTIN [Suspect]
     Indication: POST HERPETIC NEURALGIA
  3. ALL OTHER THERAPEUTIC PRODUCTS [Concomitant]

REACTIONS (4)
  - ABDOMINAL PAIN [None]
  - DYSSTASIA [None]
  - MOVEMENT DISORDER [None]
  - MUSCULOSKELETAL DISCOMFORT [None]
